FAERS Safety Report 24959552 (Version 1)
Quarter: 2025Q1

REPORT INFORMATION
  Report Type: Spontaneous
  Country: NL (occurrence: NL)
  Receive Date: 20250212
  Receipt Date: 20250212
  Transmission Date: 20250409
  Serious: Yes (Hospitalization, Other)
  Sender: ACCORD
  Company Number: None

PATIENT
  Age: 26 Year
  Sex: Female
  Weight: 75 kg

DRUGS (7)
  1. MONTELUKAST [Suspect]
     Active Substance: MONTELUKAST
     Indication: Urticaria
     Dosage: STRENGTH: 10 MG, 1X PER DAY 1 TABLET
     Dates: start: 20190201
  2. OXYCODONE HYDROCHLORIDE [Suspect]
     Active Substance: OXYCODONE HYDROCHLORIDE
     Indication: Pain
     Dosage: STRENGTH: 5 MG, MAXIMUM 6X DAILY 1 TABLET
     Dates: start: 20240401
  3. METHADONE [Suspect]
     Active Substance: METHADONE HYDROCHLORIDE
     Indication: Pain
     Dosage: STRENGTH: 5MG, 1X PER DAY 1 TABLET
     Dates: start: 20220201
  4. BUPRENORPHINE [Suspect]
     Active Substance: BUPRENORPHINE
     Indication: Pain
     Dosage: STRENGTH: 10 UG/HOUR, 1 PATCH EVERY 5 DAYS
     Dates: start: 20190201
  5. MORPHINE SULFATE [Suspect]
     Active Substance: MORPHINE SULFATE
     Indication: Pain
     Dosage: STRENGTH: 2 MG/ML , 6 X DAILY 2 ML
     Dates: start: 20240601
  6. LEVOCETIRIZINE DIHYDROCHLORIDE [Suspect]
     Active Substance: LEVOCETIRIZINE DIHYDROCHLORIDE
     Indication: Urticaria
     Dosage: STRENGTH: 50 MG, 4 X DAILY 1 TABLET
     Dates: start: 20180201
  7. OMALIZUMAB [Suspect]
     Active Substance: OMALIZUMAB
     Indication: Urticaria
     Dosage: STRENGTH: 150 MG/ML, 2 INJECTIONS (PER PIECE 150MG) EVERY 4 WEEKS
     Dates: start: 20240401

REACTIONS (3)
  - Maternal exposure during pregnancy [Unknown]
  - Foetal vascular malperfusion [Unknown]
  - Foetal death [Unknown]

NARRATIVE: CASE EVENT DATE: 20241119
